FAERS Safety Report 7608783-4 (Version None)
Quarter: 2011Q3

REPORT INFORMATION
  Report Type: 
  Country: None (occurrence: None)
  Receive Date: 20110714
  Receipt Date: 20110708
  Transmission Date: 20111222
  Serious: Yes (Hospitalization, Other)
  Sender: FDA-Public Use
  Company Number: VE-PFIZER INC-2011155578

PATIENT
  Age: 61 Year
  Sex: Male

DRUGS (8)
  1. LIPITOR [Suspect]
     Dosage: 80 MG, UNK
     Route: 048
  2. ALLOPURINOL [Concomitant]
     Dosage: UNK, 2X/DAY
     Route: 048
  3. NATRILIX ^SERVIER^ [Concomitant]
     Dosage: UNK, 1X/DAY
  4. CARVEDILOL [Concomitant]
     Dosage: 12.5 MG, 1X/DAY
     Route: 048
  5. NORVASC [Concomitant]
     Dosage: 5 MG, 1X/DAY
     Route: 048
  6. IRBESARTAN [Concomitant]
     Dosage: 300 MG, 1X/DAY
  7. PLAVIX [Concomitant]
     Dosage: 75 MG, 1X/DAY
     Route: 048
  8. ASPIRIN [Concomitant]
     Dosage: 81 MG, 1X/DAY
     Route: 048

REACTIONS (9)
  - ABDOMINAL PAIN [None]
  - ABDOMINAL PAIN UPPER [None]
  - RHABDOMYOLYSIS [None]
  - MYALGIA [None]
  - HEADACHE [None]
  - HIGH DENSITY LIPOPROTEIN DECREASED [None]
  - LOW DENSITY LIPOPROTEIN DECREASED [None]
  - HYPERTENSIVE CRISIS [None]
  - BLOOD TRIGLYCERIDES INCREASED [None]
